FAERS Safety Report 14613111 (Version 3)
Quarter: 2020Q1

REPORT INFORMATION
  Report Type: Spontaneous
  Country: US (occurrence: US)
  Receive Date: 20180308
  Receipt Date: 20200131
  Transmission Date: 20200409
  Serious: Yes (Hospitalization)
  Sender: FDA-Public Use
  Company Number: US-JNJFOC-20180308059

PATIENT
  Age: 65 Year
  Sex: Female

DRUGS (2)
  1. ASPIRIN. [Suspect]
     Active Substance: ASPIRIN
     Indication: PRODUCT USED FOR UNKNOWN INDICATION
     Route: 065
  2. XARELTO [Suspect]
     Active Substance: RIVAROXABAN
     Indication: DEEP VEIN THROMBOSIS
     Dosage: 15MG, 20 MG
     Route: 048
     Dates: start: 20141103, end: 20150617

REACTIONS (5)
  - Deep vein thrombosis [Unknown]
  - Pelvic haematoma [Unknown]
  - Thrombosis [Unknown]
  - Retroperitoneal haemorrhage [Unknown]
  - Vaginal disorder [Recovering/Resolving]

NARRATIVE: CASE EVENT DATE: 20141112
